FAERS Safety Report 8549835-4 (Version None)
Quarter: 2012Q3

REPORT INFORMATION
  Report Type: 
  Country: None (occurrence: None)
  Receive Date: 20120730
  Receipt Date: 20120716
  Transmission Date: 20120928
  Serious: Yes (Death, Hospitalization)
  Sender: FDA-Public Use
  Company Number: US-MYLANLABS-2012S1014994

PATIENT
  Age: 46 Year
  Sex: Female

DRUGS (13)
  1. CYCLOPHOSPHAMIDE [Suspect]
     Indication: DIFFUSE LARGE B-CELL LYMPHOMA
     Dosage: 8 COURSES
     Route: 065
  2. CARMUSTINE [Suspect]
     Route: 065
  3. IDARUBICIN HCL [Suspect]
     Dosage: 12 MG/D/M2 (1 CYCLE)
     Route: 065
  4. RITUXIMAB [Suspect]
     Indication: DIFFUSE LARGE B-CELL LYMPHOMA
     Dosage: 8 COURSES
     Route: 065
  5. PREDNISONE [Suspect]
     Indication: DIFFUSE LARGE B-CELL LYMPHOMA
     Dosage: 8 COURSES
     Route: 065
  6. CYTARABINE [Suspect]
     Route: 065
  7. MELPHALAN HYDROCHLORIDE [Suspect]
     Route: 065
  8. CYTARABINE [Suspect]
     Dosage: 1.5 G/D/M2 (1 CYCLE)
     Route: 065
  9. ONCOVIN [Suspect]
     Indication: DIFFUSE LARGE B-CELL LYMPHOMA
     Dosage: 8 COURSES
     Route: 065
  10. ETOPOSIDE [Suspect]
     Route: 065
  11. RITUXIMAB [Suspect]
     Route: 065
  12. DOXORUBICIN HYDROCHLORIDE [Suspect]
     Indication: DIFFUSE LARGE B-CELL LYMPHOMA
     Dosage: 8 COURSES
     Route: 065
  13. VORINOSTAT [Suspect]
     Dosage: 1 CYCLE
     Route: 048

REACTIONS (15)
  - PALLOR [None]
  - SKIN DISCOLOURATION [None]
  - ANAEMIA [None]
  - PYREXIA [None]
  - CANDIDIASIS [None]
  - PULMONARY HAEMORRHAGE [None]
  - ASTHENIA [None]
  - BLOOD CULTURE POSITIVE [None]
  - SMALL INTESTINAL HAEMORRHAGE [None]
  - ZYGOMYCOSIS [None]
  - HEPATOSPLENOMEGALY [None]
  - COUGH [None]
  - STEM CELL TRANSPLANT [None]
  - DIARRHOEA HAEMORRHAGIC [None]
  - PAIN IN EXTREMITY [None]
